FAERS Safety Report 4714507-0 (Version None)
Quarter: 2005Q3

REPORT INFORMATION
  Report Type: 
  Country: None (occurrence: None)
  Receive Date: 20050714
  Receipt Date: 20050629
  Transmission Date: 20060218
  Serious: Yes (Hospitalization)
  Sender: FDA-Public Use
  Company Number: 200511913JP

PATIENT
  Age: 69 Year
  Sex: Male

DRUGS (2)
  1. TAXOTERE [Suspect]
     Route: 041
  2. ANTINEOPLASTIC AND IMMUNOSUPPRESSIVE AGENTS [Suspect]

REACTIONS (3)
  - CHOLECYSTITIS [None]
  - DISSEMINATED INTRAVASCULAR COAGULATION [None]
  - PLATELET COUNT DECREASED [None]
